FAERS Safety Report 23339330 (Version 1)
Quarter: 2023Q4

REPORT INFORMATION
  Report Type: Spontaneous
  Country: NL (occurrence: NL)
  Receive Date: 20231226
  Receipt Date: 20231226
  Transmission Date: 20240110
  Serious: Yes (Hospitalization, Other)
  Sender: FDA-Public Use
  Company Number: NL-CELGENE-NLD-20220107295

PATIENT
  Age: 66 Year
  Sex: Female

DRUGS (15)
  1. CYCLOPHOSPHAMIDE [Suspect]
     Active Substance: CYCLOPHOSPHAMIDE
     Indication: Plasma cell myeloma
     Dosage: FREQUENCY TEXT: NOT PROVIDEDUNK
     Route: 065
     Dates: start: 20211223, end: 20211223
  2. CARFILZOMIB [Suspect]
     Active Substance: CARFILZOMIB
     Indication: Plasma cell myeloma
     Dosage: UNIT DOSE : 110 FREQUENCY TEXT: NOT PROVIDEDUNK
     Route: 065
     Dates: start: 20210816, end: 20211122
  3. DEXAMETHASONE [Suspect]
     Active Substance: DEXAMETHASONE
     Indication: Plasma cell myeloma
     Dosage: UNK
     Route: 065
     Dates: start: 20210816, end: 20211129
  4. ISATUXIMAB [Suspect]
     Active Substance: ISATUXIMAB
     Indication: Plasma cell myeloma
     Dosage: UNIT DOSE : 860 FREQUENCY TEXT: NOT PROVIDEDUNK
     Route: 065
     Dates: start: 20210816, end: 20211122
  5. LENALIDOMIDE [Suspect]
     Active Substance: LENALIDOMIDE
     Indication: Plasma cell myeloma
     Dosage: 25.000MG
     Route: 048
     Dates: start: 20210816, end: 20211128
  6. SULFAMETHOXAZOLE\TRIMETHOPRIM [Concomitant]
     Active Substance: SULFAMETHOXAZOLE\TRIMETHOPRIM
     Indication: Prophylaxis
     Dosage: FREQUENCY TEXT: NOT PROVIDEDUNK
     Route: 065
     Dates: start: 20210816
  7. FENTANYL [Concomitant]
     Active Substance: FENTANYL\FENTANYL CITRATE
     Indication: Hypertension
     Dosage: FREQUENCY TEXT: NOT PROVIDEDUNK
     Route: 065
     Dates: start: 20210805
  8. FOSTER [Concomitant]
     Active Substance: BECLOMETHASONE\FORMOTEROL
     Indication: Chronic obstructive pulmonary disease
     Dosage: FREQUENCY TEXT: NOT PROVIDEDUNK
     Route: 065
     Dates: start: 20150817
  9. NADROPARIN CALCIUM [Concomitant]
     Active Substance: NADROPARIN CALCIUM
     Indication: Prophylaxis
     Dosage: FREQUENCY TEXT: NOT PROVIDEDUNK
     Route: 065
     Dates: start: 20210811
  10. HYDROCHLOROTHIAZIDE [Concomitant]
     Active Substance: HYDROCHLOROTHIAZIDE
     Indication: Hypertension
     Dosage: FREQUENCY TEXT: NOT PROVIDEDUNK
     Route: 065
     Dates: start: 20081107
  11. OXAZEPAM [Concomitant]
     Active Substance: OXAZEPAM
     Indication: Anxiety
     Dosage: FREQUENCY TEXT: NOT PROVIDEDUNK
     Route: 065
     Dates: start: 20210913
  12. PANTOPRAZOLE SODIUM [Concomitant]
     Active Substance: PANTOPRAZOLE SODIUM
     Indication: Prophylaxis
     Dosage: FREQUENCY TEXT: NOT PROVIDEDUNK
     Route: 065
     Dates: start: 20210811
  13. ACETAMINOPHEN [Concomitant]
     Active Substance: ACETAMINOPHEN
     Indication: Back pain
     Dosage: FREQUENCY TEXT: NOT PROVIDEDUNK
     Route: 065
     Dates: start: 20210804
  14. RIVAROXABAN [Concomitant]
     Active Substance: RIVAROXABAN
     Indication: Embolism
     Dosage: FREQUENCY TEXT: NOT PROVIDEDUNK
     Route: 065
     Dates: start: 20210823
  15. ALBUTEROL [Concomitant]
     Active Substance: ALBUTEROL
     Indication: Chronic obstructive pulmonary disease
     Dosage: FREQUENCY TEXT: NOT PROVIDEDUNK
     Route: 065
     Dates: start: 20210811

REACTIONS (7)
  - Cellulitis [Recovered/Resolved]
  - Embolism [Unknown]
  - Infection [Unknown]
  - Diarrhoea [Unknown]
  - Musculoskeletal discomfort [Unknown]
  - Mucosal inflammation [Unknown]
  - Anxiety [Unknown]

NARRATIVE: CASE EVENT DATE: 20210818
